FAERS Safety Report 22254713 (Version 1)
Quarter: 2023Q2

REPORT INFORMATION
  Report Type: Spontaneous
  Country: US (occurrence: US)
  Receive Date: 20230426
  Receipt Date: 20230426
  Transmission Date: 20230721
  Serious: Yes (Hospitalization, Other)
  Sender: FDA-Public Use
  Company Number: US-SA-SAC20230425001206

PATIENT
  Sex: Male
  Weight: 58.51 kg

DRUGS (3)
  1. DUPIXENT [Suspect]
     Active Substance: DUPILUMAB
     Indication: Illness
     Dosage: 300 MG, QOW
     Route: 058
  2. VYNDAMAX [Concomitant]
     Active Substance: TAFAMIDIS
  3. IRON [Concomitant]
     Active Substance: IRON

REACTIONS (1)
  - Cellulitis [Unknown]
